FAERS Safety Report 12315275 (Version 1)
Quarter: 2016Q2

REPORT INFORMATION
  Report Type: Spontaneous
  Country: US (occurrence: US)
  Receive Date: 20160428
  Receipt Date: 20160428
  Transmission Date: 20160815
  Serious: Yes (Hospitalization, Other)
  Sender: FDA-Public Use
  Company Number: US-PFIZER INC-2016216716

PATIENT
  Age: 62 Year
  Sex: Female
  Weight: 76.2 kg

DRUGS (3)
  1. TESSALON [Suspect]
     Active Substance: BENZONATATE
     Dosage: ONE CAPSULE
     Route: 048
     Dates: start: 20151202, end: 20151202
  2. LISINOPRIL. [Suspect]
     Active Substance: LISINOPRIL
     Indication: HYPERTENSION
     Dosage: 10 MG, 1X/DAY
     Route: 048
     Dates: start: 2007, end: 20151202
  3. RAPAMUNE [Concomitant]
     Active Substance: SIROLIMUS
     Indication: RENAL TRANSPLANT
     Dosage: 0.5 MG, 1X/DAY
     Route: 048
     Dates: start: 1999

REACTIONS (3)
  - Intentional product misuse [Unknown]
  - Angioedema [Unknown]
  - Anaphylactic shock [Recovered/Resolved]

NARRATIVE: CASE EVENT DATE: 20151202
